FAERS Safety Report 7475232-9 (Version None)
Quarter: 2011Q2

REPORT INFORMATION
  Report Type: 
  Country: None (occurrence: None)
  Receive Date: 20110505
  Receipt Date: 20110218
  Transmission Date: 20111010
  Serious: Yes (Death, Other)
  Sender: FDA-Public Use
  Company Number: CN-ACCORD-008148

PATIENT
  Age: 48 Year
  Sex: Female

DRUGS (6)
  1. ETOPOSIDE [Suspect]
     Indication: OVARIAN CANCER
  2. PACLITAXEL [Suspect]
     Indication: OVARIAN CANCER
     Dosage: 135.00-MG/M2
  3. CARBOPLATIN [Suspect]
     Indication: OVARIAN CANCER
  4. CISPLATIN [Suspect]
     Indication: OVARIAN CANCER
     Dosage: 80.00-MG/M2-2.0
  5. GEMCITABINE [Suspect]
     Indication: OVARIAN CANCER
     Dosage: 750.00 MG/M2
  6. DOCETAXEL [Suspect]
     Indication: OVARIAN CANCER
     Dosage: 100.00 MG/M2-3.0/WEEKS

REACTIONS (9)
  - HAEMORRHAGIC TUMOUR NECROSIS [None]
  - OVARIAN CANCER METASTATIC [None]
  - OFF LABEL USE [None]
  - PARAESTHESIA [None]
  - VENA CAVA THROMBOSIS [None]
  - VENOUS THROMBOSIS LIMB [None]
  - NEOPLASM PROGRESSION [None]
  - THERAPEUTIC RESPONSE DECREASED [None]
  - ENDOMETRIOSIS [None]
